FAERS Safety Report 7556873-7 (Version None)
Quarter: 2011Q2

REPORT INFORMATION
  Report Type: 
  Country: None (occurrence: None)
  Receive Date: 20110620
  Receipt Date: 20110603
  Transmission Date: 20111010
  Serious: No
  Sender: FDA-Public Use
  Company Number: US-B.I. PHARMACEUTICALS,INC./RIDGEFIELD-2011-BP-14614BP

PATIENT
  Sex: Female

DRUGS (13)
  1. ZETIA [Concomitant]
     Indication: BLOOD CHOLESTEROL INCREASED
  2. TYLENOL-500 [Concomitant]
     Indication: RHEUMATOID ARTHRITIS
  3. PRADAXA [Suspect]
     Indication: ATRIAL FIBRILLATION
     Dosage: 300 MG
     Route: 048
     Dates: start: 20110525
  4. TRICOR [Concomitant]
     Indication: BLOOD CHOLESTEROL INCREASED
  5. ATENOLOL [Concomitant]
  6. ALPRAZOLAM [Concomitant]
     Indication: NERVOUSNESS
  7. DIOVAN [Concomitant]
     Indication: HYPERTENSION
  8. OMEPRAZOLE [Concomitant]
  9. VIT E [Concomitant]
  10. ISOSORBIDE [Concomitant]
  11. WELCHOL [Concomitant]
     Indication: BLOOD CHOLESTEROL INCREASED
  12. FISH OIL [Concomitant]
  13. HYDROCHLOROTHIAZIDE [Concomitant]
     Indication: HYPERTENSION

REACTIONS (4)
  - FATIGUE [None]
  - HEART RATE INCREASED [None]
  - BLOOD PRESSURE ABNORMAL [None]
  - HEADACHE [None]
